FAERS Safety Report 5787073-9 (Version None)
Quarter: 2008Q2

REPORT INFORMATION
  Report Type: 
  Country: None (occurrence: None)
  Receive Date: 20080623
  Receipt Date: 20080623
  Transmission Date: 20081010
  Serious: Yes (Hospitalization, Other)
  Sender: FDA-Public Use
  Company Number: None

PATIENT
  Age: 31 Year
  Sex: Female
  Weight: 52.6173 kg

DRUGS (2)
  1. BOTOX COSMETIC [Suspect]
     Indication: THORACIC OUTLET SYNDROME
     Dosage: 240 U 1 TIME IM
     Route: 030
     Dates: start: 20080602
  2. BOTOX COSMETIC [Suspect]
     Indication: TORTICOLLIS
     Dosage: 240 U 1 TIME IM
     Route: 030
     Dates: start: 20080602

REACTIONS (8)
  - ASTHENIA [None]
  - CHEST PAIN [None]
  - DRUG EFFECT DECREASED [None]
  - FATIGUE [None]
  - MALAISE [None]
  - MEDICAL DEVICE COMPLICATION [None]
  - MYALGIA [None]
  - PNEUMOTHORAX [None]
